FAERS Safety Report 11604160 (Version 1)
Quarter: 2015Q4

REPORT INFORMATION
  Report Type: Spontaneous
  Country: US (occurrence: None)
  Receive Date: 20151006
  Receipt Date: 20151006
  Transmission Date: 20160304
  Serious: Yes (Hospitalization)
  Sender: FDA-Public Use
  Company Number: None

PATIENT
  Sex: Female

DRUGS (1)
  1. HARVONI [Suspect]
     Active Substance: LEDIPASVIR\SOFOSBUVIR
     Indication: CHRONIC HEPATITIS C
     Dosage: 90MG/400MG
     Route: 048
     Dates: start: 20150423

REACTIONS (9)
  - Abdominal pain [None]
  - Bacterial vaginosis [None]
  - Uterine disorder [None]
  - Calcinosis [None]
  - Urinary tract infection [None]
  - Systemic inflammatory response syndrome [None]
  - Nephrolithiasis [None]
  - Postmenopausal haemorrhage [None]
  - Vaginal haemorrhage [None]

NARRATIVE: CASE EVENT DATE: 20150513
